FAERS Safety Report 7450762-4 (Version None)
Quarter: 2011Q2

REPORT INFORMATION
  Report Type: 
  Country: None (occurrence: None)
  Receive Date: 20110502
  Receipt Date: 20110422
  Transmission Date: 20111010
  Serious: Yes (Hospitalization, Other)
  Sender: FDA-Public Use
  Company Number: US-ELI_LILLY_AND_COMPANY-US201104007386

PATIENT
  Age: 61 Year
  Sex: Male

DRUGS (6)
  1. EFFIENT [Suspect]
     Indication: PERCUTANEOUS CORONARY INTERVENTION
     Dosage: 60 MG, LOADING DOSE
     Route: 065
     Dates: start: 20110321
  2. ASPIRIN [Concomitant]
     Dosage: UNK, UNKNOWN
     Route: 065
  3. EFFIENT [Suspect]
     Dosage: 10 MG, QD
     Route: 065
  4. ANGIOMAX [Concomitant]
     Dosage: UNK, UNKNOWN
     Route: 065
  5. ARB [Concomitant]
     Dosage: UNK, UNKNOWN
     Route: 065
  6. STATIN                             /00084401/ [Concomitant]
     Dosage: UNK, UNKNOWN
     Route: 065

REACTIONS (1)
  - THROMBOSIS IN DEVICE [None]
